FAERS Safety Report 10458482 (Version 1)
Quarter: 2014Q3

REPORT INFORMATION
  Report Type: Spontaneous
  Country: TR (occurrence: None)
  Receive Date: 20140915
  Receipt Date: 20140915
  Transmission Date: 20150326
  Serious: Yes (Life-Threatening, Other)
  Sender: FDA-Public Use
  Company Number: 2014SIL00003

PATIENT
  Sex: Male

DRUGS (7)
  1. MYCOPHENOLATE MOFETIL (MYCOPHENOLATE MOFETIL) [Concomitant]
     Active Substance: MYCOPHENOLATE MOFETIL
  2. TACROLIMUS (TACROLIMUS) [Concomitant]
     Active Substance: TACROLIMUS
  3. LOSARTAN (LOSARTAN) [Suspect]
     Active Substance: LOSARTAN
     Indication: HYPERTENSION
     Dosage: 50MG, 1X/DAY ORAL
     Route: 048
  4. ENALAPRIL (ENALAPRIL) [Suspect]
     Active Substance: ENALAPRIL
     Indication: PROTEINURIA
     Dosage: UNK, 1X/DAY, ORAL
     Route: 048
  5. PREDISOLONE [Concomitant]
     Active Substance: PREDNISOLONE
  6. ENALAPRIL (ENALAPRIL) [Suspect]
     Active Substance: ENALAPRIL
     Indication: HYPERTENSION
     Dosage: UNK, 1X/DAY, ORAL
     Route: 048
  7. LOSARTAN (LOSARTAN) [Suspect]
     Active Substance: LOSARTAN
     Indication: PROTEINURIA
     Dosage: 50MG, 1X/DAY ORAL
     Route: 048

REACTIONS (2)
  - Metabolic acidosis [None]
  - Hyperkalaemia [None]
